FAERS Safety Report 9737040 (Version 2)
Quarter: 2013Q4

REPORT INFORMATION
  Report Type: Spontaneous
  Country: US (occurrence: US)
  Receive Date: 20131206
  Receipt Date: 20131206
  Transmission Date: 20140711
  Serious: No
  Sender: FDA-Public Use
  Company Number: US-GILEAD-2009-0023991

PATIENT
  Sex: Female
  Weight: 77.11 kg

DRUGS (15)
  1. LETAIRIS [Suspect]
     Indication: PULMONARY ARTERIAL HYPERTENSION
     Route: 048
     Dates: start: 20090312
  2. COUMADIN [Concomitant]
  3. POTASSIUM CHLORIDE [Concomitant]
  4. MAGNESIUM OXIDE [Concomitant]
  5. ALLOPURINOL [Concomitant]
  6. HYDRALAZINE [Concomitant]
  7. LASIX [Concomitant]
  8. AMLODIPINE BESYLATE [Concomitant]
  9. DIOVAN [Concomitant]
  10. LISINOPRIL [Concomitant]
  11. TOPROL XL [Concomitant]
  12. NEXIUM [Concomitant]
  13. VITAMIN C [Concomitant]
  14. VITAMIN E [Concomitant]
  15. ZYRTEC [Concomitant]

REACTIONS (3)
  - Bronchitis [Unknown]
  - Haemoptysis [Unknown]
  - Sputum discoloured [Unknown]
